FAERS Safety Report 21027145 (Version 1)
Quarter: 2022Q2

REPORT INFORMATION
  Report Type: Spontaneous
  Country: US (occurrence: None)
  Receive Date: 20220629
  Receipt Date: 20220629
  Transmission Date: 20220721
  Serious: Yes (Life-Threatening)
  Sender: FDA-Public Use
  Company Number: None

PATIENT
  Age: 57 Year
  Sex: Male
  Weight: 74.25 kg

DRUGS (4)
  1. ONDANSETRON ODT [Suspect]
     Active Substance: ONDANSETRON
     Indication: Nausea
     Dosage: FREQUENCY : AS NEEDED;?
     Route: 060
     Dates: start: 20220628, end: 20220628
  2. ONDANSETRON ODT [Suspect]
     Active Substance: ONDANSETRON
     Indication: Vomiting
  3. ONDANSETRON ODT [Suspect]
     Active Substance: ONDANSETRON
     Indication: Heat exhaustion
  4. GNC MEGA-MEN MULTIVITAMIN [Concomitant]

REACTIONS (6)
  - Tremor [None]
  - Seizure [None]
  - Chills [None]
  - Feeling cold [None]
  - Heart rate increased [None]
  - Malaise [None]

NARRATIVE: CASE EVENT DATE: 20220628
